FAERS Safety Report 12648489 (Version 1)
Quarter: 2016Q3

REPORT INFORMATION
  Report Type: Spontaneous
  Country: US (occurrence: US)
  Receive Date: 20160812
  Receipt Date: 20160812
  Transmission Date: 20161109
  Serious: Yes (Hospitalization, Other)
  Sender: FDA-Public Use
  Company Number: US-NOVOPROD-504786

PATIENT
  Age: 76 Year
  Sex: Female

DRUGS (2)
  1. LEVEMIR [Suspect]
     Active Substance: INSULIN DETEMIR
     Indication: TYPE 2 DIABETES MELLITUS
     Dosage: 16 UNITS DAILY AT NIGHT
     Route: 058
     Dates: start: 2014
  2. NOVOLOG [Suspect]
     Active Substance: INSULIN ASPART
     Indication: TYPE 2 DIABETES MELLITUS
     Dosage: SLIDING SCALE
     Route: 058

REACTIONS (8)
  - Heart rate irregular [Unknown]
  - Vertigo [Unknown]
  - Arrhythmia [Unknown]
  - Cardiac disorder [Unknown]
  - Therapy change [Unknown]
  - Cataract [Unknown]
  - Glaucoma [Unknown]
  - Vertigo [Unknown]

NARRATIVE: CASE EVENT DATE: 201510
